FAERS Safety Report 10020035 (Version 3)
Quarter: 2014Q1

REPORT INFORMATION
  Report Type: Report from Study
  Country: US (occurrence: US)
  Receive Date: 20140318
  Receipt Date: 20140326
  Transmission Date: 20141002
  Serious: Yes (Hospitalization)
  Sender: FDA-Public Use
  Company Number: US-BRISTOL-MYERS SQUIBB COMPANY-20348801

PATIENT
  Age: 56 Year
  Sex: Female
  Weight: 62.3 kg

DRUGS (14)
  1. NULOJIX [Suspect]
     Indication: RENAL TRANSPLANT
     Dosage: 3JAN14,14JAN14,27JAN14,24FEB13?3G75065-EXP.31DEC15
     Route: 042
     Dates: start: 20131230
  2. CELLCEPT [Suspect]
     Dosage: CELLCEPT 250MG/DAY?DOSE REDUCED TO 205MG
     Route: 048
     Dates: start: 20131231
  3. ALEMTUZUMAB [Concomitant]
     Dates: start: 20130130
  4. METHYLPREDNISOLONE [Concomitant]
     Dates: start: 20131230, end: 20140121
  5. ACYCLOVIR [Concomitant]
     Dates: start: 20140104
  6. METOPROLOL [Concomitant]
     Dates: start: 20140102
  7. BACTRIM [Concomitant]
     Dates: start: 20140103
  8. CRESTOR [Concomitant]
     Dates: start: 20131107
  9. CALCIUM CARBONATE [Concomitant]
     Dates: start: 20140124
  10. DRISDOL [Concomitant]
     Dates: start: 20140205
  11. FOLIC ACID [Concomitant]
     Dates: start: 20140103
  12. PANTOPRAZOLE [Concomitant]
     Dates: start: 20131231
  13. CLOTRIMAZOLE [Concomitant]
     Dates: start: 20131230
  14. ARANESP [Concomitant]
     Dosage: 24JAN14,5FEB14
     Dates: start: 20140116

REACTIONS (3)
  - Transplant dysfunction [Unknown]
  - Anaemia [Recovered/Resolved]
  - Cytomegalovirus colitis [Unknown]
